FAERS Safety Report 4483713-5 (Version None)
Quarter: 2004Q4

REPORT INFORMATION
  Report Type: 
  Country: None (occurrence: None)
  Receive Date: 20041020
  Receipt Date: 20041015
  Transmission Date: 20050328
  Serious: Yes (Hospitalization)
  Sender: FDA-Public Use
  Company Number: KII-2004-0013587

PATIENT
  Age: 3 Year
  Weight: 14 kg

DRUGS (1)
  1. MORPHINE SULFATE [Suspect]

REACTIONS (7)
  - ACCIDENTAL EXPOSURE [None]
  - CEREBRAL VENTRICLE DILATATION [None]
  - DEPRESSED LEVEL OF CONSCIOUSNESS [None]
  - MENTAL STATUS CHANGES [None]
  - MIOSIS [None]
  - RESPIRATORY RATE DECREASED [None]
  - TREMOR [None]
